FAERS Safety Report 5579299-4 (Version None)
Quarter: 2008Q1

REPORT INFORMATION
  Report Type: 
  Country: None (occurrence: None)
  Receive Date: 20080102
  Receipt Date: 20071224
  Transmission Date: 20080703
  Serious: Yes (Death, Life-Threatening)
  Sender: FDA-Public Use
  Company Number: JP-BRACCO-BRO-012389

PATIENT
  Age: 82 Year
  Sex: Female

DRUGS (8)
  1. IOPAMIDOL [Suspect]
     Indication: HIATUS HERNIA
     Route: 042
     Dates: start: 20071126, end: 20071126
  2. IOPAMIDOL [Suspect]
     Indication: COMPUTERISED TOMOGRAM
     Route: 042
     Dates: start: 20071126, end: 20071126
  3. SOLU-CORTEF [Concomitant]
     Route: 042
     Dates: start: 20071126
  4. SOLU-CORTEF [Concomitant]
     Route: 065
     Dates: start: 20071126
  5. BOSMIN [Concomitant]
     Route: 030
     Dates: start: 20071126
  6. POLARAMINE [Concomitant]
     Route: 042
     Dates: start: 20071126
  7. GASTER [Concomitant]
     Route: 042
     Dates: start: 20071126
  8. VASOPRESSIN AND ANALOGUES [Concomitant]
     Route: 065
     Dates: start: 20071126

REACTIONS (6)
  - ANAPHYLACTIC SHOCK [None]
  - BLOOD PRESSURE DECREASED [None]
  - DEPRESSED LEVEL OF CONSCIOUSNESS [None]
  - HEART RATE INCREASED [None]
  - HYPERHIDROSIS [None]
  - WHEEZING [None]
